FAERS Safety Report 20183709 (Version 2)
Quarter: 2021Q4

REPORT INFORMATION
  Report Type: Spontaneous
  Country: US (occurrence: US)
  Receive Date: 20211214
  Receipt Date: 20211231
  Transmission Date: 20220303
  Serious: No
  Sender: FDA-Public Use
  Company Number: US-UNITED THERAPEUTICS-UNT-2021-025257

PATIENT
  Sex: Female
  Weight: 86.168 kg

DRUGS (4)
  1. REMODULIN [Suspect]
     Active Substance: TREPROSTINIL
     Indication: Pulmonary arterial hypertension
     Dosage: UNK UNK, CONTINUING
     Route: 041
     Dates: start: 20200811
  2. REMODULIN [Suspect]
     Active Substance: TREPROSTINIL
     Dosage: 0.066 ?G/KG, CONTINUING
     Route: 041
  3. REMODULIN [Suspect]
     Active Substance: TREPROSTINIL
     Dosage: UNK, CONTINUING
     Route: 041
  4. REVATIO [Concomitant]
     Active Substance: SILDENAFIL CITRATE
     Indication: Product used for unknown indication
     Dosage: UNK
     Route: 065

REACTIONS (5)
  - Device issue [Unknown]
  - Headache [Unknown]
  - Diarrhoea [Unknown]
  - Vision blurred [Unknown]
  - Epistaxis [Unknown]
